FAERS Safety Report 9925575 (Version 1)
Quarter: 2014Q1

REPORT INFORMATION
  Report Type: Spontaneous
  Country: US (occurrence: None)
  Receive Date: 20140225
  Receipt Date: 20140225
  Transmission Date: 20141002
  Serious: Yes (Death)
  Sender: FDA-Public Use
  Company Number: None

PATIENT
  Age: 69 Year
  Sex: Female
  Weight: 56.8 kg

DRUGS (1)
  1. LETROXOLE (FEMARA) [Suspect]
     Indication: BREAST CANCER

REACTIONS (1)
  - Cerebrovascular accident [None]
